FAERS Safety Report 21149150 (Version 2)
Quarter: 2022Q3

REPORT INFORMATION
  Report Type: Report from Study
  Country: US (occurrence: US)
  Receive Date: 20220729
  Receipt Date: 20220929
  Transmission Date: 20221026
  Serious: No
  Sender: FDA-Public Use
  Company Number: US-BIOVITRUM-2022US08943

PATIENT
  Age: 52 Year
  Sex: Female

DRUGS (2)
  1. KINERET [Suspect]
     Active Substance: ANAKINRA
     Indication: Familial amyloidosis
     Dates: start: 20220701
  2. KINERET [Suspect]
     Active Substance: ANAKINRA
     Dates: start: 202206

REACTIONS (7)
  - Feeling hot [Unknown]
  - Erythema [Unknown]
  - Skin reaction [Recovering/Resolving]
  - Urticaria [Unknown]
  - Pruritus [Unknown]
  - Injection site reaction [Unknown]
  - Off label use [Not Recovered/Not Resolved]

NARRATIVE: CASE EVENT DATE: 20220601
